FAERS Safety Report 16635713 (Version 1)
Quarter: 2019Q3

REPORT INFORMATION
  Report Type: Report from Study
  Country: NL (occurrence: NL)
  Receive Date: 20190726
  Receipt Date: 20190726
  Transmission Date: 20191004
  Serious: Yes (Other)
  Sender: FDA-Public Use
  Company Number: NL-ASPEN-GLO2019NL007296

PATIENT
  Age: 33 Year
  Sex: Female

DRUGS (1)
  1. TIOGUANINE [Suspect]
     Active Substance: THIOGUANINE ANHYDROUS
     Indication: CROHN^S DISEASE
     Dosage: UNK
     Route: 065

REACTIONS (9)
  - Off label use [Unknown]
  - Hepatic fibrosis [Unknown]
  - Phlebosclerosis [Unknown]
  - Liver function test abnormal [Recovering/Resolving]
  - Hepatic vein dilatation [Unknown]
  - Nodular regenerative hyperplasia [Unknown]
  - Hepatotoxicity [Unknown]
  - Phlebosclerosis [Recovering/Resolving]
  - Focal nodular hyperplasia [Recovered/Resolved]
